FAERS Safety Report 8222859-2 (Version None)
Quarter: 2012Q1

REPORT INFORMATION
  Report Type: 
  Country: None (occurrence: None)
  Receive Date: 20120320
  Receipt Date: 20120312
  Transmission Date: 20120608
  Serious: Yes (Other)
  Sender: FDA-Public Use
  Company Number: US-ASTRAZENECA-2011SE32253

PATIENT
  Age: 63 Year
  Sex: Female
  Weight: 65.8 kg

DRUGS (14)
  1. NEXIUM [Suspect]
     Route: 048
     Dates: start: 20011201, end: 20030701
  2. PREVACID [Concomitant]
     Indication: GASTROOESOPHAGEAL REFLUX DISEASE
     Dates: start: 20030701, end: 20060801
  3. ZEGERID [Concomitant]
     Indication: GASTROOESOPHAGEAL REFLUX DISEASE
     Dates: start: 20070801
  4. TOPROL-XL [Concomitant]
     Indication: BLOOD PRESSURE
  5. CLIMARA [Concomitant]
     Dates: start: 20060101
  6. PROTONIX [Concomitant]
     Indication: GASTROOESOPHAGEAL REFLUX DISEASE
     Dates: start: 20060801, end: 20070701
  7. CRESTOR [Concomitant]
     Indication: BLOOD CHOLESTEROL
  8. SYNTHROID [Concomitant]
     Indication: HYPERPARATHYROIDISM
  9. NEXIUM [Suspect]
     Indication: GASTROOESOPHAGEAL REFLUX DISEASE
     Route: 048
     Dates: start: 20010101, end: 20030101
  10. AMILORIDE HCL AND HYDROCHLOROTHIAZIDE [Concomitant]
     Indication: BLOOD CALCIUM ABNORMAL
     Dosage: 5MG/50MG
  11. SYNTHROID [Concomitant]
     Indication: THYROID DISORDER
  12. ASPIRIN [Concomitant]
     Indication: CARDIAC DISORDER
  13. LIPITOR [Concomitant]
     Indication: BLOOD CHOLESTEROL
  14. CALCIUM CARBONATE [Concomitant]
     Indication: CALCIUM DEFICIENCY

REACTIONS (5)
  - SPINAL COMPRESSION FRACTURE [None]
  - BONE DENSITY DECREASED [None]
  - CARPAL TUNNEL SYNDROME [None]
  - SPINAL FRACTURE [None]
  - OSTEOPOROSIS [None]
